FAERS Safety Report 10037567 (Version 1)
Quarter: 2014Q1

REPORT INFORMATION
  Report Type: Other
  Country: GB (occurrence: GB)
  Receive Date: 20140326
  Receipt Date: 20140326
  Transmission Date: 20141002
  Serious: Yes (Hospitalization, Other)
  Sender: FDA-Public Use
  Company Number: GB-PERRIGO-14GB003037

PATIENT
  Sex: 0

DRUGS (13)
  1. NAPROXEN 250MG 16028/0144 [Suspect]
     Indication: PAIN
     Dosage: 3.5 G, SINGLE
     Route: 048
     Dates: start: 20130307, end: 20130307
  2. NAPROXEN 250MG 16028/0144 [Suspect]
     Indication: SUICIDE ATTEMPT
     Dosage: 250 MG, BID
     Route: 048
  3. PARACETAMOL [Suspect]
     Indication: PAIN
     Dosage: 8 G, SINGLE
     Route: 048
     Dates: start: 20130307, end: 20130307
  4. PARACETAMOL [Suspect]
     Indication: SUICIDE ATTEMPT
     Dosage: 1 G, QD
  5. AIN457 SECUKINUMAB [Suspect]
     Indication: PSORIASIS
     Dosage: 2 DF, QD
     Route: 058
     Dates: start: 20121214, end: 20130205
  6. AMOXICILLIN [Suspect]
     Indication: PRODUCT USED FOR UNKNOWN INDICATION
     Dosage: 5 G, SINGLE
     Route: 048
     Dates: start: 20130307, end: 20130307
  7. AMOXICILLIN [Suspect]
     Indication: SUICIDE ATTEMPT
  8. LEVOTHYROXINE [Suspect]
     Indication: HYPOTHYROIDISM
     Dosage: 7900 MCG, SINGLE
     Route: 048
     Dates: start: 20130307, end: 20130307
  9. LEVOTHYROXINE [Suspect]
     Indication: SUICIDE ATTEMPT
     Dosage: 100 MG, QD
     Route: 048
  10. OMEPRAZOLE [Suspect]
     Indication: DYSPEPSIA
     Dosage: 500 MG, SINGLE
     Route: 048
     Dates: start: 20130307, end: 20130307
  11. OMEPRAZOLE [Suspect]
     Indication: SUICIDE ATTEMPT
     Dosage: 20 MG, BID
     Route: 048
  12. CITALOPRAM [Suspect]
     Indication: DEPRESSION
     Dosage: 1440 MG, SINGLE
     Route: 048
     Dates: start: 20130307, end: 20130307
  13. CITALOPRAM [Suspect]
     Indication: SUICIDE ATTEMPT

REACTIONS (2)
  - Intentional overdose [Recovering/Resolving]
  - Analgesic drug level increased [Unknown]
